FAERS Safety Report 7102627-5 (Version None)
Quarter: 2010Q4

REPORT INFORMATION
  Report Type: 
  Country: None (occurrence: None)
  Receive Date: 20101115
  Receipt Date: 20101110
  Transmission Date: 20110411
  Serious: Yes (Hospitalization)
  Sender: FDA-Public Use
  Company Number: B0683710A

PATIENT
  Sex: Female

DRUGS (8)
  1. CLAMOXYL [Suspect]
     Indication: PROPHYLAXIS
     Dosage: 500MG TWICE PER DAY
     Route: 048
     Dates: start: 20100409, end: 20100409
  2. AVLOCARDYL [Concomitant]
     Dosage: 1UNIT PER DAY
     Route: 048
  3. TRANXENE [Concomitant]
     Route: 048
  4. CYMBALTA [Concomitant]
     Dosage: 1UNIT PER DAY
     Route: 048
  5. STILNOX [Concomitant]
     Dosage: 1UNIT PER DAY
     Route: 048
  6. NORSET [Concomitant]
     Dosage: 1UNIT PER DAY
     Route: 048
  7. FENOFIBRATE [Concomitant]
     Dosage: 1UNIT PER DAY
     Route: 048
  8. AMAREL [Concomitant]

REACTIONS (9)
  - ABDOMINAL PAIN UPPER [None]
  - ANAPHYLACTIC SHOCK [None]
  - CYANOSIS [None]
  - GENERALISED ERYTHEMA [None]
  - HYPERHIDROSIS [None]
  - HYPOTENSION [None]
  - MALAISE [None]
  - PRURITUS [None]
  - RALES [None]
